FAERS Safety Report 5362812-X (Version None)
Quarter: 2007Q2

REPORT INFORMATION
  Report Type: 
  Country: None (occurrence: None)
  Receive Date: 20070619
  Receipt Date: 20070516
  Transmission Date: 20071010
  Serious: Yes (Other)
  Sender: FDA-Public Use
  Company Number: TH-GENENTECH-241765

PATIENT
  Age: 42 Year
  Sex: Female

DRUGS (3)
  1. HERCEPTIN [Suspect]
     Indication: BREAST CANCER
  2. MABTHERA [Suspect]
     Indication: BREAST CANCER
  3. CHEMOTHERAPY DRUG NOS [Concomitant]
     Indication: BREAST CANCER

REACTIONS (1)
  - EMBOLISM [None]
